FAERS Safety Report 24233827 (Version 1)
Quarter: 2024Q3

REPORT INFORMATION
  Report Type: Spontaneous
  Country: US (occurrence: US)
  Receive Date: 20240821
  Receipt Date: 20240821
  Transmission Date: 20241016
  Serious: No
  Sender: SANOFI AVENTIS
  Company Number: US-SA-SAC20240817000953

PATIENT
  Age: 65 Year
  Sex: Male
  Weight: 106 kg

DRUGS (9)
  1. DUPIXENT [Suspect]
     Active Substance: DUPILUMAB
     Indication: Dermatitis atopic
     Dosage: 600 MG, 1X
     Route: 058
     Dates: start: 20240730, end: 20240730
  2. SIMVASTATIN [Concomitant]
     Active Substance: SIMVASTATIN
  3. OMEPRAZOLE [Concomitant]
     Active Substance: OMEPRAZOLE
  4. ALEVE [Concomitant]
     Active Substance: NAPROXEN SODIUM
  5. AMLODIPINE BESYLATE [Concomitant]
     Active Substance: AMLODIPINE BESYLATE
  6. TAMSULOSIN HYDROCHLORIDE [Concomitant]
     Active Substance: TAMSULOSIN HYDROCHLORIDE
  7. ZETIA [Concomitant]
     Active Substance: EZETIMIBE
  8. CARVEDILOL [Concomitant]
     Active Substance: CARVEDILOL
  9. OSTEO-BI-FLEX [Concomitant]
     Dosage: OSTEO BI-FLEX 1500MG-400 TABLET

REACTIONS (3)
  - Pruritus [Recovering/Resolving]
  - Injection site erythema [Recovered/Resolved]
  - Injection site pruritus [Recovered/Resolved]

NARRATIVE: CASE EVENT DATE: 20240101
